FAERS Safety Report 8411449 (Version 5)
Quarter: 2013Q3

REPORT INFORMATION
  Report Type: Report from Study
  Country: US (occurrence: US)
  Receive Date: 20120217
  Receipt Date: 20130913
  Transmission Date: 20140515
  Serious: Yes (Hospitalization)
  Sender: FDA-Public Use
  Company Number: US-JNJFOC-20120205334

PATIENT
  Age: 12 Year
  Sex: Female
  Weight: 35.7 kg

DRUGS (26)
  1. REMICADE [Suspect]
     Indication: INFLAMMATORY BOWEL DISEASE
     Route: 042
     Dates: start: 20070802, end: 20080709
  2. CIMZIA [Concomitant]
     Dates: start: 20100514
  3. AMITRIPTYLINE [Concomitant]
  4. ASCORBIC ACID [Concomitant]
     Route: 050
  5. TACROLIMUS [Concomitant]
  6. VITAMIN D [Concomitant]
  7. LANSOPRAZOLE [Concomitant]
  8. MULTIVITAMINS [Concomitant]
  9. ACETAMINOPHEN [Concomitant]
  10. CALCIUM [Concomitant]
  11. TRAMADOL [Concomitant]
  12. TRIAMCINOLONE [Concomitant]
  13. CITALOPRAM [Concomitant]
  14. MAGNESIUM OXIDE [Concomitant]
  15. FERROUS SULPHATE [Concomitant]
  16. DOCUSATE SODIUM [Concomitant]
  17. OXYCODONE [Concomitant]
  18. FLUCONAZOLE [Concomitant]
  19. CHOLECALCIFEROL [Concomitant]
     Route: 050
  20. CYPROHEPTADINE [Concomitant]
  21. TOPICAL PREPARATIONS [Concomitant]
     Route: 061
  22. PREDNISONE [Concomitant]
  23. 6-MERCAPTOPURINE [Concomitant]
  24. ANTIBIOTICS [Concomitant]
     Indication: INFLAMMATORY BOWEL DISEASE
  25. HYDROCORTISONE [Concomitant]
  26. HUMIRA [Concomitant]
     Route: 065
     Dates: start: 20080730, end: 20100521

REACTIONS (1)
  - Skin irritation [Recovered/Resolved]
